FAERS Safety Report 4524245-5 (Version None)
Quarter: 2004Q4

REPORT INFORMATION
  Report Type: 
  Country: None (occurrence: None)
  Receive Date: 20041119
  Receipt Date: 20040923
  Transmission Date: 20050328
  Serious: No
  Sender: FDA-Public Use
  Company Number: PHEH2004US10358

PATIENT
  Age: 40 Year

DRUGS (4)
  1. ZELNORM [Suspect]
     Indication: IRRITABLE BOWEL SYNDROME
     Dosage: 6 MG, QD, ORAL
     Route: 048
     Dates: start: 20040801
  2. MULTIVITAMINS (PANTHENOL, RETINOL) [Concomitant]
  3. VITAMIN E [Concomitant]
  4. CALCIUM [Concomitant]

REACTIONS (4)
  - EXTRAOCULAR MUSCLE DISORDER [None]
  - HEADACHE [None]
  - OEDEMA PERIPHERAL [None]
  - PAIN IN EXTREMITY [None]
